FAERS Safety Report 5031475-5 (Version None)
Quarter: 2006Q2

REPORT INFORMATION
  Report Type: 
  Country: None (occurrence: None)
  Receive Date: 20060616
  Receipt Date: 20060609
  Transmission Date: 20061013
  Serious: Yes (Death)
  Sender: FDA-Public Use
  Company Number: 2006-06-0719

PATIENT
  Age: 81 Year
  Sex: Male

DRUGS (2)
  1. ISOSORBIDE MONONITRATE [Suspect]
     Dosage: 60 MG ORAL
     Route: 048
  2. NITRO-DUR [Suspect]
     Dosage: TRANSDERMAL
     Route: 062

REACTIONS (1)
  - DEATH [None]
